FAERS Safety Report 23892092 (Version 2)
Quarter: 2024Q2

REPORT INFORMATION
  Report Type: Spontaneous
  Country: JP (occurrence: JP)
  Receive Date: 20240524
  Receipt Date: 20240607
  Transmission Date: 20240716
  Serious: Yes (Hospitalization)
  Sender: FDA-Public Use
  Company Number: JP-Merck Healthcare KGaA-2024027949

PATIENT
  Age: 85 Year
  Sex: Male
  Weight: 40 kg

DRUGS (7)
  1. METGLUCO [Suspect]
     Active Substance: METFORMIN HYDROCHLORIDE
     Indication: Type 2 diabetes mellitus
     Dosage: BID, UNKNOWN
     Route: 048
     Dates: end: 20240508
  2. VILDAGLIPTIN [Suspect]
     Active Substance: VILDAGLIPTIN
     Indication: Type 2 diabetes mellitus
     Dosage: QD, UNKNOWN
     Route: 048
     Dates: end: 20240508
  3. GLIMEPIRIDE [Concomitant]
     Active Substance: GLIMEPIRIDE
     Indication: Type 2 diabetes mellitus
     Route: 048
     Dates: end: 20240508
  4. MIGLITOL [Concomitant]
     Active Substance: MIGLITOL
     Indication: Type 2 diabetes mellitus
     Route: 048
     Dates: end: 20240508
  5. TEPRENONE [Concomitant]
     Active Substance: TEPRENONE
     Indication: Product used for unknown indication
     Dates: end: 20240508
  6. TEPRENONE [Concomitant]
     Active Substance: TEPRENONE
     Dosage: UNSPECIFIED FORM
     Route: 048
  7. HEMOPORISON [Concomitant]
     Indication: Product used for unknown indication

REACTIONS (17)
  - Pemphigoid [Not Recovered/Not Resolved]
  - Blood albumin decreased [Not Recovered/Not Resolved]
  - Blood chloride decreased [Recovered/Resolved]
  - Blood cholinesterase decreased [Not Recovered/Not Resolved]
  - Blood creatine phosphokinase decreased [Not Recovered/Not Resolved]
  - Blood creatinine decreased [Recovered/Resolved]
  - Blood immunoglobulin E increased [Unknown]
  - Blood sodium decreased [Recovered/Resolved]
  - C-reactive protein increased [Recovering/Resolving]
  - Chromaturia [Unknown]
  - Haemoglobin decreased [Not Recovered/Not Resolved]
  - Lymphocyte percentage decreased [Recovered/Resolved]
  - Neutrophil count increased [Recovering/Resolving]
  - Specific gravity urine increased [Unknown]
  - White blood cell count increased [Recovering/Resolving]
  - Aspartate aminotransferase decreased [Unknown]
  - Blood glucose increased [Recovering/Resolving]

NARRATIVE: CASE EVENT DATE: 20240401
